FAERS Safety Report 26187412 (Version 1)
Quarter: 2025Q4

REPORT INFORMATION
  Report Type: Spontaneous
  Country: US (occurrence: US)
  Receive Date: 20251222
  Receipt Date: 20251222
  Transmission Date: 20260117
  Serious: No
  Sender: TEVA
  Company Number: US-ABBVIE-6580444

PATIENT
  Age: 71 Year
  Sex: Female
  Weight: 79 kg

DRUGS (6)
  1. OXYTROL [Suspect]
     Active Substance: OXYBUTYNIN
     Indication: Hypertonic bladder
     Dosage: FORM STRENGTH: 3.9 MILLIGRAM; TRANSDERMAL SOLUTION
     Route: 062
     Dates: start: 2023
  2. ADDERALL [Concomitant]
     Active Substance: AMPHETAMINE ASPARTATE\AMPHETAMINE SULFATE\DEXTROAMPHETAMINE SACCHARATE\DEXTROAMPHETAMINE SULFATE
     Indication: Attention deficit hyperactivity disorder
     Dosage: UNKNOWN
  3. ATENOLOL [Concomitant]
     Active Substance: ATENOLOL
     Indication: Hypertension
     Dosage: UNKNOWN
  4. CLONIDINE [Concomitant]
     Active Substance: CLONIDINE
     Indication: Product used for unknown indication
  5. LEVOTHYROXINE [Concomitant]
     Active Substance: LEVOTHYROXINE
     Indication: Hypothyroidism
     Dosage: UNKNOWN
  6. SINGULAIR [Concomitant]
     Active Substance: MONTELUKAST SODIUM
     Indication: Multiple allergies
     Dosage: UNKNOWN

REACTIONS (3)
  - Dry mouth [Not Recovered/Not Resolved]
  - Drug ineffective [Unknown]
  - Product adhesion issue [Unknown]

NARRATIVE: CASE EVENT DATE: 20230101
